FAERS Safety Report 5682155-4 (Version None)
Quarter: 2008Q1

REPORT INFORMATION
  Report Type: 
  Country: None (occurrence: None)
  Receive Date: 20080325
  Receipt Date: 20080317
  Transmission Date: 20080703
  Serious: Yes (Other)
  Sender: FDA-Public Use
  Company Number: 2008BI007022

PATIENT
  Age: 53 Year
  Sex: Female
  Weight: 100 kg

DRUGS (8)
  1. NATALIZUMAB (NATALIZUMAB) [Suspect]
     Indication: MULTIPLE SCLEROSIS
     Dosage: 300 MG; QM; IV
     Route: 030
     Dates: start: 20061013, end: 20080111
  2. ESOMEPRAZOLE MAGNESIUM [Concomitant]
  3. SURMONVINE [Concomitant]
  4. OVIDOL [Concomitant]
  5. INDOMETRACIN [Concomitant]
  6. PROBIOTICAL [Concomitant]
  7. SELENIUM [Concomitant]
  8. PARACETAMOL [Concomitant]

REACTIONS (2)
  - BASAL CELL CARCINOMA [None]
  - DRY SKIN [None]
